FAERS Safety Report 25876467 (Version 3)
Quarter: 2025Q4

REPORT INFORMATION
  Report Type: Report from Study
  Country: US (occurrence: US)
  Receive Date: 20251003
  Receipt Date: 20251030
  Transmission Date: 20260117
  Serious: Yes (Other)
  Sender: MALLINCKRODT
  Company Number: US-MALLINCKRODT-MNK202505935

PATIENT
  Age: 67 Year
  Sex: Female

DRUGS (2)
  1. CORTICOTROPIN [Suspect]
     Active Substance: CORTICOTROPIN
     Indication: Rheumatoid arthritis
     Dosage: 80 UNITS
     Route: 058
     Dates: start: 202502, end: 2025
  2. CORTICOTROPIN [Suspect]
     Active Substance: CORTICOTROPIN
     Indication: Rheumatoid arthritis
     Dosage: UNKNOWN
     Dates: start: 2025

REACTIONS (6)
  - Type 2 diabetes mellitus [Unknown]
  - Blood cholesterol increased [Unknown]
  - Injection site bruising [Unknown]
  - Swelling face [Recovered/Resolved]
  - Abdominal distension [Unknown]
  - Fluid retention [Unknown]

NARRATIVE: CASE EVENT DATE: 20250101
